FAERS Safety Report 5064063-5 (Version None)
Quarter: 2006Q3

REPORT INFORMATION
  Report Type: 
  Country: None (occurrence: None)
  Receive Date: 20060706
  Receipt Date: 20060306
  Transmission Date: 20061208
  Serious: No
  Sender: FDA-Public Use
  Company Number: 200611251BWH

PATIENT
  Sex: Male

DRUGS (3)
  1. LEVITRA [Suspect]
     Indication: DRUG USE FOR UNKNOWN INDICATION
     Dosage: SEE IMAGE
     Route: 048
     Dates: start: 20060301
  2. LEVITRA [Suspect]
     Indication: DRUG USE FOR UNKNOWN INDICATION
     Dosage: SEE IMAGE
     Route: 048
     Dates: start: 20060304
  3. AMARYL [Concomitant]

REACTIONS (1)
  - DRUG INEFFECTIVE [None]
